FAERS Safety Report 6084094-6 (Version None)
Quarter: 2009Q1

REPORT INFORMATION
  Report Type: 
  Country: None (occurrence: None)
  Receive Date: 20090217
  Receipt Date: 20090217
  Transmission Date: 20090719
  Serious: No
  Sender: FDA-Public Use
  Company Number: None

PATIENT
  Age: 26 Year
  Sex: Female
  Weight: 67.1324 kg

DRUGS (1)
  1. PRISTIQ [Suspect]
     Indication: DEPRESSION
     Dosage: 50MG 1QD PO
     Route: 048
     Dates: start: 20090214, end: 20090215

REACTIONS (2)
  - HALLUCINATION [None]
  - SENSORY DISTURBANCE [None]
